FAERS Safety Report 13985728 (Version 1)
Quarter: 2017Q3

REPORT INFORMATION
  Report Type: Spontaneous
  Country: DE (occurrence: DE)
  Receive Date: 20170919
  Receipt Date: 20170919
  Transmission Date: 20171128
  Serious: Yes (Congenital Anomaly, Other)
  Sender: FDA-Public Use
  Company Number: DE-DRREDDYS-GER/GER/17/0092163

PATIENT
  Age: 1 Day
  Sex: Male
  Weight: 1.21 kg

DRUGS (4)
  1. BETAMETHASONE. [Concomitant]
     Active Substance: BETAMETHASONE
     Indication: MATERNAL THERAPY TO ENHANCE FOETAL LUNG MATURITY
     Route: 064
     Dates: start: 20160629, end: 20160630
  2. SERTRALINE [Suspect]
     Active Substance: SERTRALINE HYDROCHLORIDE
     Indication: DEPRESSION
     Route: 064
     Dates: start: 20151225, end: 20160703
  3. LEVOTHYROXINE SODIUM. [Concomitant]
     Active Substance: LEVOTHYROXINE SODIUM
     Indication: HYPOTHYROIDISM
     Route: 064
     Dates: start: 20151225, end: 20160703
  4. FOLSAEURE [Concomitant]
     Active Substance: FOLIC ACID
     Indication: PROPHYLAXIS OF NEURAL TUBE DEFECT
     Route: 064
     Dates: start: 20151225, end: 20160202

REACTIONS (9)
  - Haemangioma congenital [Not Recovered/Not Resolved]
  - Nephrocalcinosis [Unknown]
  - Microphthalmos [Not Recovered/Not Resolved]
  - Coordination abnormal [Unknown]
  - Meningoencephalitis viral [Recovered/Resolved]
  - Patent ductus arteriosus [Recovered/Resolved]
  - Plagiocephaly [Unknown]
  - Foetal exposure during pregnancy [Unknown]
  - Skin disorder [Not Recovered/Not Resolved]

NARRATIVE: CASE EVENT DATE: 20160703
